FAERS Safety Report 26014777 (Version 1)
Quarter: 2025Q4

REPORT INFORMATION
  Report Type: Spontaneous
  Country: JP (occurrence: JP)
  Receive Date: 20251108
  Receipt Date: 20251108
  Transmission Date: 20260117
  Serious: Yes (Other)
  Sender: MERCK SHARP & DOHME LLC
  Company Number: JP-009507513-2348036

PATIENT
  Age: 6 Decade
  Sex: Male

DRUGS (3)
  1. PEMBROLIZUMAB [Suspect]
     Active Substance: PEMBROLIZUMAB
     Indication: Papillary renal cell carcinoma
  2. LENVATINIB [Suspect]
     Active Substance: LENVATINIB
     Indication: Metastases to lung
  3. LENVATINIB [Suspect]
     Active Substance: LENVATINIB
     Indication: Metastases to lung

REACTIONS (2)
  - Renal haemorrhage [Unknown]
  - Erythema multiforme [Unknown]
